FAERS Safety Report 10011757 (Version 2)
Quarter: 2014Q2

REPORT INFORMATION
  Report Type: Report from Study
  Country: CA (occurrence: CA)
  Receive Date: 20140314
  Receipt Date: 20140404
  Transmission Date: 20141212
  Serious: Yes (Other)
  Sender: FDA-Public Use
  Company Number: CA-BRISTOL-MYERS SQUIBB COMPANY-20403978

PATIENT
  Age: 53 Year
  Sex: Female

DRUGS (2)
  1. ORENCIA [Suspect]
     Indication: RHEUMATOID ARTHRITIS
     Dosage: 1DF = 750UNITS?FREQ=4 WEEKS
     Dates: start: 20131204
  2. HYDROCHLOROTHIAZIDE [Concomitant]

REACTIONS (4)
  - Osteoarthritis [Recovering/Resolving]
  - Impaired healing [Recovered/Resolved]
  - Arthralgia [Unknown]
  - Peripheral swelling [Unknown]
